FAERS Safety Report 6473770-9 (Version None)
Quarter: 2009Q4

REPORT INFORMATION
  Report Type: 
  Country: None (occurrence: None)
  Receive Date: 20091204
  Receipt Date: 20091127
  Transmission Date: 20100525
  Serious: Yes (Hospitalization)
  Sender: FDA-Public Use
  Company Number: FR-PFIZER INC-2009303302

PATIENT
  Age: 81 Year
  Sex: Male

DRUGS (5)
  1. DALACINE [Suspect]
     Dosage: 900 MG, 1X/DAY
     Route: 048
     Dates: start: 20090710, end: 20090910
  2. PREVISCAN [Suspect]
     Dosage: UNK
     Route: 048
     Dates: start: 20090727, end: 20090902
  3. FUSIDIC ACID [Concomitant]
     Dosage: UNK
     Dates: start: 20090727
  4. CARDENSIEL [Concomitant]
  5. TRIVASTAL [Concomitant]

REACTIONS (1)
  - RENAL FAILURE ACUTE [None]
